FAERS Safety Report 14366639 (Version 1)
Quarter: 2018Q1

REPORT INFORMATION
  Report Type: Spontaneous
  Country: US (occurrence: US)
  Receive Date: 20180108
  Receipt Date: 20180108
  Transmission Date: 20180509
  Serious: No
  Sender: FDA-Public Use
  Company Number: None

PATIENT
  Age: 60 Year
  Sex: Male
  Weight: 109.77 kg

DRUGS (1)
  1. LEVOTHYROXINE 125MCG [Suspect]
     Active Substance: LEVOTHYROXINE SODIUM
     Route: 048
     Dates: start: 20140122, end: 20141024

REACTIONS (2)
  - Drug ineffective [None]
  - Product substitution issue [None]
